FAERS Safety Report 22133827 (Version 3)
Quarter: 2023Q2

REPORT INFORMATION
  Report Type: Spontaneous
  Country: US (occurrence: US)
  Receive Date: 20230324
  Receipt Date: 20230609
  Transmission Date: 20230722
  Serious: No
  Sender: FDA-Public Use
  Company Number: US-SANOFI-01540292

PATIENT
  Age: 83 Year
  Sex: Male

DRUGS (1)
  1. DUPIXENT [Suspect]
     Active Substance: DUPILUMAB
     Indication: Skin disorder
     Dosage: 300 MG, QOW
     Route: 065
     Dates: start: 202212

REACTIONS (1)
  - Visual impairment [Unknown]
